FAERS Safety Report 20939174 (Version 1)
Quarter: 2022Q2

REPORT INFORMATION
  Report Type: Spontaneous
  Country: CA (occurrence: CA)
  Receive Date: 20220609
  Receipt Date: 20220609
  Transmission Date: 20220721
  Serious: Yes (Other)
  Sender: FDA-Public Use
  Company Number: CA-ELI_LILLY_AND_COMPANY-CA202206002638

PATIENT
  Age: 61 Year
  Sex: Male

DRUGS (3)
  1. PEMETREXED [Suspect]
     Active Substance: PEMETREXED
     Indication: Lung carcinoma cell type unspecified stage IV
     Dosage: UNK, UNKNOWN
     Route: 065
  2. CISPLATIN [Suspect]
     Active Substance: CISPLATIN
     Indication: Lung carcinoma cell type unspecified stage IV
     Dosage: UNK, UNKNOWN
     Route: 065
  3. KEYTRUDA [Suspect]
     Active Substance: PEMBROLIZUMAB
     Indication: Lung carcinoma cell type unspecified stage IV
     Dosage: UNK, UNKNOWN
     Route: 065

REACTIONS (3)
  - Type 1 diabetes mellitus [Unknown]
  - Malignant neoplasm progression [Unknown]
  - Drug ineffective [Unknown]
